FAERS Safety Report 6867324-X (Version None)
Quarter: 2010Q3

REPORT INFORMATION
  Report Type: 
  Country: None (occurrence: None)
  Receive Date: 20100722
  Receipt Date: 20100715
  Transmission Date: 20110219
  Serious: Yes (Hospitalization)
  Sender: FDA-Public Use
  Company Number: JP-MERCK-1007USA02159

PATIENT
  Age: 60 Year
  Sex: Female

DRUGS (3)
  1. SINGULAIR [Suspect]
     Indication: ASTHMA
     Route: 048
  2. SYMBICORT [Concomitant]
     Indication: ASTHMA
     Route: 055
  3. THEOPHYLLINE [Concomitant]
     Indication: ASTHMA
     Route: 048

REACTIONS (1)
  - ALLERGIC GRANULOMATOUS ANGIITIS [None]
